FAERS Safety Report 8854985 (Version 1)
Quarter: 2012Q4

REPORT INFORMATION
  Report Type: 
  Country: CA (occurrence: CA)
  Receive Date: 20121023
  Receipt Date: 20121023
  Transmission Date: 20130627
  Serious: No
  Sender: FDA-Public Use
  Company Number: CA-TEVA-364830USA

PATIENT
  Age: 28 Year
  Sex: Female

DRUGS (1)
  1. PLAN B [Suspect]
     Indication: CONTRACEPTION
     Dosage: .75 Milligram Daily;
     Route: 048
     Dates: start: 20120916, end: 20120916

REACTIONS (1)
  - Metrorrhagia [Not Recovered/Not Resolved]
